FAERS Safety Report 4880139-7 (Version None)
Quarter: 2006Q1

REPORT INFORMATION
  Report Type: 
  Country: None (occurrence: None)
  Receive Date: 20060113
  Receipt Date: 20060104
  Transmission Date: 20060701
  Serious: Yes (Hospitalization, Disabling)
  Sender: FDA-Public Use
  Company Number: PHRM2006FR00452

PATIENT
  Age: 76 Year
  Sex: Female
  Weight: 57 kg

DRUGS (2)
  1. ZOMETA [Suspect]
     Indication: MULTIPLE MYELOMA
     Route: 042
     Dates: start: 20021226, end: 20050106
  2. DEXAMETHASONE TAB [Concomitant]
     Dosage: 40 MG/DAY/4 DAYS EVERY 10 DAYS
     Route: 048
     Dates: start: 20021008, end: 20041015

REACTIONS (8)
  - BONE GRAFT [None]
  - IMPAIRED HEALING [None]
  - OSTEONECROSIS [None]
  - PURULENT DISCHARGE [None]
  - SURGERY [None]
  - TOOTH ABSCESS [None]
  - TOOTH EXTRACTION [None]
  - WOUND DRAINAGE [None]
